FAERS Safety Report 23232118 (Version 4)
Quarter: 2024Q1

REPORT INFORMATION
  Report Type: Spontaneous
  Country: IT (occurrence: IT)
  Receive Date: 20231127
  Receipt Date: 20240305
  Transmission Date: 20240410
  Serious: Yes (Life-Threatening, Hospitalization, Other)
  Sender: FDA-Public Use
  Company Number: IT-BIOGEN-2023BI01237038

PATIENT
  Age: 56 Year
  Sex: Male
  Weight: 93 kg

DRUGS (12)
  1. TOFERSEN [Suspect]
     Active Substance: TOFERSEN
     Indication: Amyotrophic lateral sclerosis
     Route: 050
     Dates: start: 20211221, end: 20231107
  2. RILUZOLE [Concomitant]
     Active Substance: RILUZOLE
     Indication: Product used for unknown indication
     Dosage: 1 TABLET H 8-20
     Route: 050
     Dates: start: 20210715
  3. BRINTELLIX [Concomitant]
     Active Substance: VORTIOXETINE HYDROBROMIDE
     Indication: Product used for unknown indication
     Dosage: 2 TABLETS H 8
     Route: 050
     Dates: start: 20110701
  4. LAMICTAL [Concomitant]
     Active Substance: LAMOTRIGINE
     Indication: Product used for unknown indication
     Dosage: 2 TABLETS H 8
     Route: 050
     Dates: start: 20111201
  5. HALCION [Concomitant]
     Active Substance: TRIAZOLAM
     Indication: Product used for unknown indication
     Dosage: 1 TABLET IN THE EVENING
     Route: 050
     Dates: start: 20110701
  6. ACETYLCARNITINE [Concomitant]
     Active Substance: ACETYLCARNITINE
     Indication: Product used for unknown indication
     Dosage: 2 TABLET H 8-14-20
     Route: 050
     Dates: start: 20210715
  7. FOSTER [Concomitant]
     Active Substance: BECLOMETHASONE\FORMOTEROL
     Indication: Product used for unknown indication
     Dosage: 1 PUFF TWICE A DAY
     Route: 050
     Dates: start: 20150615
  8. .ALPHA.-TOCOPHEROL ACETATE, D- [Concomitant]
     Active Substance: .ALPHA.-TOCOPHEROL ACETATE, D-
     Indication: Product used for unknown indication
     Dosage: 1 TABLET H 8-20
     Route: 050
     Dates: start: 20210715
  9. TUSCA [Concomitant]
     Indication: Product used for unknown indication
     Dosage: 4 TABLET H 8-20
     Route: 050
     Dates: start: 20220301
  10. ZOFENOPRIL [Concomitant]
     Active Substance: ZOFENOPRIL
     Indication: Product used for unknown indication
     Dosage: ONE HALF TABLET IN THE MORNING
     Route: 050
     Dates: start: 20230415
  11. LANSOPRAZOLE [Concomitant]
     Active Substance: LANSOPRAZOLE
     Indication: Product used for unknown indication
     Dosage: 1 TABLET H 7
     Route: 050
     Dates: start: 20230718
  12. LEVOFLOXACIN [Concomitant]
     Active Substance: LEVOFLOXACIN
     Indication: Product used for unknown indication
     Dosage: 1 TABLET IN THE EVENING
     Route: 050
     Dates: start: 20231107, end: 20231114

REACTIONS (2)
  - Acute respiratory failure [Recovered/Resolved with Sequelae]
  - Dysphagia [Recovered/Resolved with Sequelae]

NARRATIVE: CASE EVENT DATE: 20231117
